FAERS Safety Report 7866615-3 (Version None)
Quarter: 2011Q4

REPORT INFORMATION
  Report Type: 
  Country: None (occurrence: None)
  Receive Date: 20111028
  Receipt Date: 20110714
  Transmission Date: 20120403
  Serious: No
  Sender: FDA-Public Use
  Company Number: US-GLAXOSMITHKLINE-A0936831A

PATIENT
  Age: 71 Year
  Sex: Female
  Weight: 67.7 kg

DRUGS (12)
  1. LEVOTHYROXINE SODIUM [Concomitant]
  2. GRISEOFULVIN [Concomitant]
  3. SPIRIVA [Concomitant]
  4. EVISTA [Concomitant]
  5. ADVAIR DISKUS 100/50 [Suspect]
     Indication: DYSPNOEA
     Dosage: 1PUFF TWICE PER DAY
     Route: 055
     Dates: start: 20110517, end: 20110618
  6. BENAZEPRIL HYDROCHLORIDE AND HYDROCHLOROTHIAZIDE [Concomitant]
  7. BUSPIRONE [Concomitant]
  8. POTASSIUM [Concomitant]
  9. COREG [Concomitant]
  10. FUROSEMIDE [Concomitant]
  11. TEMAZEPAM [Concomitant]
  12. AMLODIPINE BESYLATE [Concomitant]

REACTIONS (1)
  - DYSGEUSIA [None]
